FAERS Safety Report 19868369 (Version 1)
Quarter: 2021Q3

REPORT INFORMATION
  Report Type: Report from Study
  Country: FR (occurrence: FR)
  Receive Date: 20210921
  Receipt Date: 20210921
  Transmission Date: 20211014
  Serious: Yes (Hospitalization)
  Sender: FDA-Public Use
  Company Number: FR-SERVIER-S21010227

PATIENT

DRUGS (5)
  1. TN UNSPECIFIED [Concomitant]
     Indication: ACUTE LYMPHOCYTIC LEUKAEMIA
     Dosage: 12 MG, D4
     Route: 037
     Dates: start: 20210813
  2. TN UNSPECIFIED [Concomitant]
     Indication: ACUTE LYMPHOCYTIC LEUKAEMIA
     Dosage: 34 MG, D1 TO D8, D15 TO D22
     Route: 065
     Dates: start: 20210810, end: 20210830
  3. PEGASPARGASE [Suspect]
     Active Substance: PEGASPARGASE
     Indication: ACUTE LYMPHOCYTIC LEUKAEMIA
     Dosage: 2850 IU, D4
     Route: 042
     Dates: start: 20210813
  4. TN UNSPECIFIED [Concomitant]
     Indication: ACUTE LYMPHOCYTIC LEUKAEMIA
     Dosage: 11 MG, D1 TO D21
     Route: 048
     Dates: start: 20210810, end: 20210830
  5. TN UNSPECIFIED [Concomitant]
     Indication: ACUTE LYMPHOCYTIC LEUKAEMIA
     Dosage: 1.7 MG, D1 TO D8, D15 TO D22
     Route: 065
     Dates: start: 20210810, end: 20210830

REACTIONS (4)
  - Febrile bone marrow aplasia [Recovering/Resolving]
  - Respiratory disorder [Recovering/Resolving]
  - Mucosal inflammation [Recovering/Resolving]
  - Colitis [Recovering/Resolving]

NARRATIVE: CASE EVENT DATE: 20210907
